FAERS Safety Report 25706696 (Version 1)
Quarter: 2025Q3

REPORT INFORMATION
  Report Type: Spontaneous
  Country: US (occurrence: None)
  Receive Date: 20250819
  Receipt Date: 20250819
  Transmission Date: 20251021
  Serious: No
  Sender: FDA-CTU
  Company Number: None

PATIENT
  Sex: Female

DRUGS (2)
  1. DOTTI [Suspect]
     Active Substance: ESTRADIOL
     Dates: start: 20250626, end: 20250815
  2. CLIMARA [Suspect]
     Active Substance: ESTRADIOL
     Dates: start: 20210202, end: 20210218

REACTIONS (2)
  - Dermatitis contact [None]
  - Application site rash [None]
